FAERS Safety Report 21963615 (Version 1)
Quarter: 2023Q1

REPORT INFORMATION
  Report Type: Spontaneous
  Country: US (occurrence: US)
  Receive Date: 20230207
  Receipt Date: 20230207
  Transmission Date: 20230418
  Serious: No
  Sender: FDA-Public Use
  Company Number: US-SA-SAC20230203000725

PATIENT
  Sex: Female

DRUGS (1)
  1. DUPIXENT [Suspect]
     Active Substance: DUPILUMAB
     Indication: Asthma
     Dosage: 300 MG, QOW
     Route: 058
     Dates: start: 202211

REACTIONS (6)
  - Contusion [Unknown]
  - Musculoskeletal stiffness [Unknown]
  - Mobility decreased [Unknown]
  - Eye pain [Unknown]
  - Condition aggravated [Unknown]
  - Rash [Unknown]

NARRATIVE: CASE EVENT DATE: 20221201
